FAERS Safety Report 9589437 (Version 1)
Quarter: 2013Q4

REPORT INFORMATION
  Report Type: Spontaneous
  Country: US (occurrence: US)
  Receive Date: 20131003
  Receipt Date: 20131003
  Transmission Date: 20140711
  Serious: No
  Sender: FDA-Public Use
  Company Number: US-AMGEN-USASP2012070078

PATIENT
  Sex: Female

DRUGS (5)
  1. ENBREL [Suspect]
     Indication: PRODUCT USED FOR UNKNOWN INDICATION
     Dosage: 50 MG, QWK
  2. WELLBUTRIN [Concomitant]
     Dosage: 150 MG, UNK
  3. FISH OIL W/VITAMIN D NOS [Concomitant]
     Dosage: UNK
  4. ATIVAN [Concomitant]
     Dosage: 4 MG, UNK
  5. MOTRIN [Concomitant]
     Dosage: 40 MG, UNK

REACTIONS (5)
  - Injection site reaction [Unknown]
  - Injection site erythema [Unknown]
  - Injection site pain [Unknown]
  - Injection site pruritus [Unknown]
  - Injection site urticaria [Unknown]
